FAERS Safety Report 8083211-6 (Version None)
Quarter: 2012Q1

REPORT INFORMATION
  Report Type: 
  Country: None (occurrence: None)
  Receive Date: 20120127
  Receipt Date: 20110303
  Transmission Date: 20120608
  Serious: No
  Sender: FDA-Public Use
  Company Number: US-ABBOTT-11P-163-0708959-00

PATIENT
  Age: 56 Year
  Sex: Female

DRUGS (8)
  1. FOLIC ACID [Concomitant]
     Indication: PRODUCT USED FOR UNKNOWN INDICATION
  2. VICODIN [Concomitant]
     Indication: PAIN
  3. HYDROCHLOROTHIAZIDE [Concomitant]
     Indication: SWELLING
  4. NIACIN [Concomitant]
     Indication: PRODUCT USED FOR UNKNOWN INDICATION
  5. GABAPENTIN [Concomitant]
     Indication: PRODUCT USED FOR UNKNOWN INDICATION
  6. LUNESTA [Concomitant]
     Indication: INSOMNIA
  7. ASPIRIN [Concomitant]
     Indication: PRODUCT USED FOR UNKNOWN INDICATION
  8. HUMIRA [Suspect]
     Indication: RHEUMATOID ARTHRITIS
     Dates: start: 20110101

REACTIONS (2)
  - SKIN BURNING SENSATION [None]
  - URTICARIA [None]
